FAERS Safety Report 10155047 (Version 1)
Quarter: 2014Q2

REPORT INFORMATION
  Report Type: Spontaneous
  Country: PE (occurrence: PE)
  Receive Date: 20140506
  Receipt Date: 20140506
  Transmission Date: 20141212
  Serious: Yes (Other)
  Sender: FDA-Public Use
  Company Number: PE-PFIZER INC-2014121660

PATIENT
  Age: 31 Year
  Sex: Female

DRUGS (4)
  1. LYRICA [Suspect]
     Dosage: 75 MG, 2X/DAY
     Route: 048
     Dates: start: 2011, end: 2011
  2. LYRICA [Suspect]
     Dosage: 75 MG, 2X/DAY
     Route: 048
     Dates: start: 2012, end: 2012
  3. LYRICA [Suspect]
     Dosage: 75 MG, 2X/DAY
     Route: 048
     Dates: start: 2013
  4. CLONAZEPAM [Concomitant]
     Route: 065

REACTIONS (1)
  - Gastric ulcer helicobacter [Not Recovered/Not Resolved]
